FAERS Safety Report 8202329-8 (Version None)
Quarter: 2012Q1

REPORT INFORMATION
  Report Type: 
  Country: None (occurrence: None)
  Receive Date: 20120308
  Receipt Date: 20120222
  Transmission Date: 20120608
  Serious: Yes (Congenital Anomaly)
  Sender: FDA-Public Use
  Company Number: UCM201202-000017

PATIENT

DRUGS (4)
  1. CARBAMAZEPINE [Suspect]
     Dosage: 800 MG, TRANSPLACENTAL
     Route: 064
  2. GABAPENTIN [Suspect]
     Dosage: 900 MG, TRANSPLACENTAL
  3. TOPIRAMATE [Suspect]
     Dosage: 400 MG, TRANSPLACENTAL
     Route: 064
  4. CLONAZEPAM [Suspect]
     Dosage: 2 MG TRANSPLACENTAL
     Route: 064

REACTIONS (3)
  - MATERNAL DRUGS AFFECTING FOETUS [None]
  - CLEFT LIP AND PALATE [None]
  - MULTIPLE CONGENITAL ABNORMALITIES [None]
